FAERS Safety Report 8381409-0 (Version None)
Quarter: 2012Q2

REPORT INFORMATION
  Report Type: 
  Country: None (occurrence: None)
  Receive Date: 20120523
  Receipt Date: 20120124
  Transmission Date: 20120825
  Serious: Yes (Hospitalization)
  Sender: FDA-Public Use
  Company Number: PHHO2011US16468

PATIENT
  Sex: Female
  Weight: 131.52 kg

DRUGS (5)
  1. BLINDED FTY 720 [Suspect]
     Indication: PRIMARY PROGRESSIVE MULTIPLE SCLEROSIS
     Dosage: CODE NOT BROKEN
     Dates: start: 20110428
  2. LISINOPRIL [Suspect]
     Dosage: 5 MG, UNK
     Dates: start: 20080601
  3. BLINDED NO TREATMENT RECEIVED [Suspect]
     Indication: PRIMARY PROGRESSIVE MULTIPLE SCLEROSIS
     Dosage: CODE NOT BROKEN
     Dates: start: 20110428
  4. PLACEBO [Suspect]
     Indication: PRIMARY PROGRESSIVE MULTIPLE SCLEROSIS
     Dosage: CODE NOT BROKEN
     Dates: start: 20110428
  5. DOXAZOSIN MESYLATE [Concomitant]
     Indication: HYPERTENSION
     Dosage: 4 MG, UNK
     Dates: start: 20070601

REACTIONS (1)
  - CHOLELITHIASIS [None]
